FAERS Safety Report 20447006 (Version 1)
Quarter: 2022Q1

REPORT INFORMATION
  Report Type: Report from Study
  Country: CO (occurrence: CO)
  Receive Date: 20220209
  Receipt Date: 20220209
  Transmission Date: 20220423
  Serious: Yes (Death, Hospitalization, Other)
  Sender: FDA-Public Use
  Company Number: CO-ABBVIE-22K-036-4223746-00

PATIENT
  Sex: Male
  Weight: 87 kg

DRUGS (2)
  1. ZEMPLAR [Suspect]
     Active Substance: PARICALCITOL
     Indication: Hyperparathyroidism secondary
     Dosage: POST-DIALYSIS
     Route: 042
     Dates: start: 20171023, end: 20210915
  2. ZEMPLAR [Suspect]
     Active Substance: PARICALCITOL
     Indication: Chronic kidney disease

REACTIONS (7)
  - Cardiac arrest [Fatal]
  - Death [Fatal]
  - General physical health deterioration [Not Recovered/Not Resolved]
  - Cardiac infection [Not Recovered/Not Resolved]
  - Pneumonia [Recovering/Resolving]
  - Mood altered [Recovering/Resolving]
  - Discouragement [Recovering/Resolving]

NARRATIVE: CASE EVENT DATE: 20210101
